FAERS Safety Report 19441088 (Version 1)
Quarter: 2021Q2

REPORT INFORMATION
  Report Type: Spontaneous
  Country: US (occurrence: US)
  Receive Date: 20210617
  Receipt Date: 20210617
  Transmission Date: 20210717
  Serious: Yes (Other)
  Sender: FDA-Public Use
  Company Number: None

PATIENT
  Age: 89 Year
  Sex: Female

DRUGS (12)
  1. ELEMENTAL IRON [Concomitant]
  2. MVI [Concomitant]
     Active Substance: VITAMINS
  3. EYLEA [Concomitant]
     Active Substance: AFLIBERCEPT
  4. SAMBUCOL [Concomitant]
     Active Substance: BRYONIA ALBA ROOT\GELSEMIUM SEMPERVIRENS ROOT\SAMBUCUS NIGRA FLOWERING TOP\SULFUR\ZINC GLUCONATE
  5. CALAMINE TOPICAL [Concomitant]
  6. DR. TEALS MOISTURIZING BATH AND BODY OIL [Concomitant]
  7. VITAMIN B12 [Concomitant]
     Active Substance: CYANOCOBALAMIN
  8. PROCRIT [Concomitant]
     Active Substance: ERYTHROPOIETIN
  9. METOPROLOL. [Concomitant]
     Active Substance: METOPROLOL
  10. VITAMIN C [Concomitant]
     Active Substance: ASCORBIC ACID
  11. GABAPENTIN 100MG DAILY [Suspect]
     Active Substance: GABAPENTIN
     Indication: PRURITUS
     Dosage: ?          QUANTITY:1 TABLET(S);?
     Route: 048
  12. VITAMIN E [Concomitant]
     Active Substance: .ALPHA.-TOCOPHEROL

REACTIONS (2)
  - Somnolence [None]
  - Mood altered [None]

NARRATIVE: CASE EVENT DATE: 20210312
